FAERS Safety Report 18553947 (Version 25)
Quarter: 2025Q2

REPORT INFORMATION
  Report Type: Report from Study
  Country: US (occurrence: US)
  Receive Date: 20201127
  Receipt Date: 20250502
  Transmission Date: 20250717
  Serious: Yes (Hospitalization, Other)
  Sender: TAKEDA
  Company Number: US-TAKEDA-US202016162

PATIENT
  Age: 69 Year
  Sex: Female
  Weight: 78 kg

DRUGS (42)
  1. HUMAN IMMUNOGLOBULIN G [Suspect]
     Active Substance: HUMAN IMMUNOGLOBULIN G
     Indication: Congenital hypogammaglobulinaemia
     Dosage: 20 GRAM, Q2WEEKS
     Dates: start: 20170220
  2. HUMAN IMMUNOGLOBULIN G [Suspect]
     Active Substance: HUMAN IMMUNOGLOBULIN G
     Indication: Primary immunodeficiency syndrome
     Dosage: 20 GRAM, Q2WEEKS
     Dates: start: 20170221
  3. HUMAN IMMUNOGLOBULIN G [Suspect]
     Active Substance: HUMAN IMMUNOGLOBULIN G
     Indication: IgG deficiency
     Dosage: 20 GRAM, Q2WEEKS
     Dates: start: 20181004
  4. HUMAN IMMUNOGLOBULIN G [Suspect]
     Active Substance: HUMAN IMMUNOGLOBULIN G
     Dosage: 10 GRAM, 1/WEEK
  5. HUMAN IMMUNOGLOBULIN G [Suspect]
     Active Substance: HUMAN IMMUNOGLOBULIN G
     Dosage: 20 GRAM, Q2WEEKS
  6. HUMAN IMMUNOGLOBULIN G [Suspect]
     Active Substance: HUMAN IMMUNOGLOBULIN G
     Dosage: 10 GRAM, 1/WEEK
  7. HUMAN IMMUNOGLOBULIN G [Suspect]
     Active Substance: HUMAN IMMUNOGLOBULIN G
  8. GAMMAGARD LIQUID [Suspect]
     Active Substance: HUMAN IMMUNOGLOBULIN G
     Indication: Congenital hypogammaglobulinaemia
     Dosage: 10 GRAM, 1/WEEK
     Dates: start: 20180810
  9. COVID-19 VACCINE NOS [Suspect]
     Active Substance: COVID-19 VACCINE
     Indication: Product used for unknown indication
  10. DIPHENHYDRAMINE [Concomitant]
     Active Substance: DIPHENHYDRAMINE
  11. ATORVASTATIN CALCIUM [Concomitant]
     Active Substance: ATORVASTATIN CALCIUM
  12. RANOLAZINE [Concomitant]
     Active Substance: RANOLAZINE
  13. EPINEPHRINE [Concomitant]
     Active Substance: EPINEPHRINE
  14. LEVOTHYROXINE SODIUM [Concomitant]
     Active Substance: LEVOTHYROXINE SODIUM
  15. ONDANSETRON HYDROCHLORIDE [Concomitant]
     Active Substance: ONDANSETRON HYDROCHLORIDE
  16. TOPIRAMATE [Concomitant]
     Active Substance: TOPIRAMATE
  17. ACETAMINOPHEN [Concomitant]
     Active Substance: ACETAMINOPHEN
  18. VITAMIN D3 [Concomitant]
     Active Substance: CHOLECALCIFEROL
  19. LORAZEPAM [Concomitant]
     Active Substance: LORAZEPAM
  20. NITROGLYCERIN [Concomitant]
     Active Substance: NITROGLYCERIN
  21. SUMATRIPTAN SUCCINATE [Concomitant]
     Active Substance: SUMATRIPTAN SUCCINATE
  22. PROAIR HFA [Concomitant]
     Active Substance: ALBUTEROL SULFATE
  23. MONTELUKAST SODIUM [Concomitant]
     Active Substance: MONTELUKAST SODIUM
  24. Lmx [Concomitant]
  25. DILTIAZEM [Concomitant]
     Active Substance: DILTIAZEM
  26. PREDNISOLONE [Concomitant]
     Active Substance: PREDNISOLONE
  27. OFLOXACIN [Concomitant]
     Active Substance: OFLOXACIN
  28. KETOROLAC [Concomitant]
     Active Substance: KETOROLAC TROMETHAMINE
  29. NASACORT [Concomitant]
     Active Substance: TRIAMCINOLONE ACETONIDE
  30. KETOCONAZOLE [Concomitant]
     Active Substance: KETOCONAZOLE
  31. INDOMETHACIN [Concomitant]
     Active Substance: INDOMETHACIN
  32. CETIRIZINE [Concomitant]
     Active Substance: CETIRIZINE HYDROCHLORIDE
     Indication: Product used for unknown indication
  33. DESONIDE [Concomitant]
     Active Substance: DESONIDE
  34. MECLIZINE [Concomitant]
     Active Substance: MECLIZINE HYDROCHLORIDE
  35. TROMETHAMINE [Concomitant]
     Active Substance: TROMETHAMINE
  36. BROMFENAC;PREDNISOLONE [Concomitant]
  37. DIPHENHYDRAMINE HYDROCHLORIDE [Concomitant]
     Active Substance: DIPHENHYDRAMINE HYDROCHLORIDE
  38. ONDANSETRON [Concomitant]
     Active Substance: ONDANSETRON
  39. MECLIZINE HYDROCHLORIDE [Concomitant]
     Active Substance: MECLIZINE HYDROCHLORIDE
  40. ELIQUIS [Concomitant]
     Active Substance: APIXABAN
     Indication: Product used for unknown indication
  41. LEVOTHYROXINE [Concomitant]
     Active Substance: LEVOTHYROXINE
     Indication: Product used for unknown indication
  42. PIMECROLIMUS [Concomitant]
     Active Substance: PIMECROLIMUS
     Indication: Product used for unknown indication

REACTIONS (31)
  - Hand fracture [Unknown]
  - Psoriatic arthropathy [Not Recovered/Not Resolved]
  - Sjogren^s syndrome [Unknown]
  - Pneumonia [Unknown]
  - Renal impairment [Unknown]
  - Lactose intolerance [Unknown]
  - Eyelid infection [Unknown]
  - Multiple allergies [Unknown]
  - Smoke sensitivity [Unknown]
  - Psoriasis [Not Recovered/Not Resolved]
  - Arthritis [Unknown]
  - Erythema migrans [Unknown]
  - Sinusitis fungal [Unknown]
  - Urinary tract infection [Unknown]
  - Skin infection [Unknown]
  - Gastrointestinal inflammation [Unknown]
  - Eye infection [Unknown]
  - Seasonal allergy [Unknown]
  - Renal disorder [Unknown]
  - Device malfunction [Unknown]
  - Inappropriate schedule of product administration [Unknown]
  - Factor V Leiden mutation [Unknown]
  - Product use in unapproved indication [Unknown]
  - COVID-19 [Unknown]
  - Coagulopathy [Unknown]
  - Asthma [Unknown]
  - Phlebitis [Unknown]
  - Infusion site reaction [Unknown]
  - Influenza like illness [Unknown]
  - Infusion site pruritus [Unknown]
  - Infusion site erythema [Recovered/Resolved]

NARRATIVE: CASE EVENT DATE: 20210521
